FAERS Safety Report 20843115 (Version 4)
Quarter: 2022Q2

REPORT INFORMATION
  Report Type: Report from Study
  Country: US (occurrence: US)
  Receive Date: 20220518
  Receipt Date: 20220602
  Transmission Date: 20220721
  Serious: Yes (Life-Threatening, Hospitalization, Other)
  Sender: FDA-Public Use
  Company Number: US-BRISTOL-MYERS SQUIBB COMPANY-2022-026129

PATIENT
  Age: 66 Year
  Sex: Male
  Weight: 98.4 kg

DRUGS (13)
  1. PLACEBO [Suspect]
     Active Substance: UNSPECIFIED INGREDIENT
     Indication: Hypertrophic cardiomyopathy
     Dosage: ON 15-APR-2022, THE MOST RECENT ADMINISTRATION OF DOSE BLINDED MAVACAMTEN
     Route: 065
     Dates: start: 20210716
  2. METOPROLOL SUCCINATE [Concomitant]
     Active Substance: METOPROLOL SUCCINATE
     Indication: Hypertrophic cardiomyopathy
     Route: 048
     Dates: start: 20210415
  3. ASCORBIC ACID [Concomitant]
     Active Substance: ASCORBIC ACID
     Indication: Supplementation therapy
     Route: 048
     Dates: start: 20160811
  4. CHOLECALCIFEROL [Concomitant]
     Active Substance: CHOLECALCIFEROL
     Indication: Supplementation therapy
     Route: 048
     Dates: start: 2020
  5. EFINACONAZOLE [Concomitant]
     Active Substance: EFINACONAZOLE
     Indication: Onychomycosis
     Dosage: 1 DF =  1 APPLICATION?10% SOLUTION
     Route: 061
     Dates: start: 202004
  6. EXELDERM [NAFTIFINE HYDROCHLORIDE] [Concomitant]
     Indication: Onychomycosis
     Dosage: 1 DF= 1 APPLICATION?AS NEEDED?1% CREAM
     Route: 061
     Dates: start: 20210409
  7. FOLIC ACID [Concomitant]
     Active Substance: FOLIC ACID
     Indication: Supplementation therapy
     Dosage: 1 DF= 1 TABLET?MULTIVITAMIN
     Route: 048
     Dates: start: 20160811
  8. MICROZIDE [GLICLAZIDE] [Concomitant]
     Indication: Hypertrophic cardiomyopathy
     Dosage: EVERY MONDAY, WEDNESDAY, FRIDAY
     Route: 048
     Dates: start: 20210421
  9. OMEGA-3 FATTY ACIDS [Concomitant]
     Active Substance: OMEGA-3 FATTY ACIDS
     Indication: Supplementation therapy
     Route: 048
     Dates: start: 2016
  10. ASPIRIN [Concomitant]
     Active Substance: ASPIRIN
     Indication: Prophylaxis
     Route: 048
     Dates: start: 2017, end: 20210713
  11. COVID-19 VACCINE [Concomitant]
     Indication: Prophylaxis
     Dosage: 1 DF=1 SYRINGE?ONCE
     Route: 030
     Dates: start: 20210315, end: 20210315
  12. COVID-19 VACCINE [Concomitant]
     Indication: Supplementation therapy
     Dosage: COVID-19 VACCINE BOOSTER?ONCE
     Route: 030
     Dates: start: 20211109, end: 20211109
  13. ENOXAPARIN [Concomitant]
     Active Substance: ENOXAPARIN
     Indication: Prophylaxis
     Route: 058
     Dates: start: 20220416, end: 20220416

REACTIONS (3)
  - Syncope [Recovered/Resolved]
  - Circulatory collapse [Recovered/Resolved]
  - Ventricular arrhythmia [Recovered/Resolved]

NARRATIVE: CASE EVENT DATE: 20220415
